FAERS Safety Report 18130919 (Version 1)
Quarter: 2020Q3

REPORT INFORMATION
  Report Type: Report from Study
  Country: US (occurrence: US)
  Receive Date: 20200810
  Receipt Date: 20200810
  Transmission Date: 20201103
  Serious: Yes (Hospitalization)
  Sender: FDA-Public Use
  Company Number: US-ACTELION-A-NJ2017-155803

PATIENT
  Age: 61 Year
  Sex: Female
  Weight: 70.75 kg

DRUGS (7)
  1. OPSUMIT [Suspect]
     Active Substance: MACITENTAN
     Indication: PULMONARY ARTERIAL HYPERTENSION
     Dosage: 10 MG, QD
     Route: 048
     Dates: start: 20161221
  2. OPSUMIT [Suspect]
     Active Substance: MACITENTAN
     Dosage: 10 MG,QD
     Route: 048
  3. DILTIAZEM. [Concomitant]
     Active Substance: DILTIAZEM
  4. REVATIO [Concomitant]
     Active Substance: SILDENAFIL CITRATE
  5. WARFARIN [Concomitant]
     Active Substance: WARFARIN
  6. ELIQUIS [Concomitant]
     Active Substance: APIXABAN
  7. REMODULIN [Concomitant]
     Active Substance: TREPROSTINIL

REACTIONS (16)
  - Feeling abnormal [Unknown]
  - Facial paralysis [Unknown]
  - Dysentery [Unknown]
  - Weight increased [Unknown]
  - Influenza [Unknown]
  - Umbilical hernia [Unknown]
  - Catheter site erythema [Unknown]
  - Sinusitis [Unknown]
  - Pneumonia [Not Recovered/Not Resolved]
  - Arthropod bite [Unknown]
  - Upper respiratory tract infection [Unknown]
  - Device breakage [Unknown]
  - Urinary tract infection [Unknown]
  - Nasopharyngitis [Unknown]
  - Cataract operation [Unknown]
  - Illness [Unknown]

NARRATIVE: CASE EVENT DATE: 20170831
